FAERS Safety Report 9165384 (Version 2)
Quarter: 2013Q2

REPORT INFORMATION
  Report Type: Spontaneous
  Country: US (occurrence: US)
  Receive Date: 20130315
  Receipt Date: 20130403
  Transmission Date: 20140414
  Serious: Yes (Other)
  Sender: FDA-Public Use
  Company Number: PHEH2013US005769

PATIENT
  Sex: Male

DRUGS (4)
  1. TASIGNA [Suspect]
     Dosage: UNK
  2. SIMVASTATIN [Concomitant]
     Dosage: UNK
  3. METOPROLOL SUCCINATE [Concomitant]
     Dosage: UNK
  4. LEVETIRACETAM [Concomitant]
     Indication: EPILEPSY
     Dosage: UNK

REACTIONS (3)
  - Convulsion [Unknown]
  - Aura [Unknown]
  - Dizziness [Unknown]
